FAERS Safety Report 5104425-0 (Version None)
Quarter: 2006Q3

REPORT INFORMATION
  Report Type: 
  Country: None (occurrence: None)
  Receive Date: 20060914
  Receipt Date: 20060727
  Transmission Date: 20061208
  Serious: Yes (Hospitalization, Other)
  Sender: FDA-Public Use
  Company Number: US-AMGEN-STX188197

PATIENT
  Sex: Female

DRUGS (6)
  1. ENBREL [Suspect]
     Indication: PSORIATIC ARTHROPATHY
     Route: 058
     Dates: start: 20050927, end: 20060706
  2. FISH OIL [Concomitant]
  3. GLUCOSAMINE [Concomitant]
  4. MOBIC [Concomitant]
  5. ASCORBIC ACID [Concomitant]
  6. NEXIUM [Concomitant]

REACTIONS (7)
  - APPENDICITIS [None]
  - CONDITION AGGRAVATED [None]
  - GASTROENTERITIS ROTAVIRUS [None]
  - PSORIATIC ARTHROPATHY [None]
  - SALPINGITIS [None]
  - THERAPY NON-RESPONDER [None]
  - TUBO-OVARIAN ABSCESS [None]
